FAERS Safety Report 23087190 (Version 1)
Quarter: 2023Q4

REPORT INFORMATION
  Report Type: Spontaneous
  Country: GB (occurrence: GB)
  Receive Date: 20231020
  Receipt Date: 20231020
  Transmission Date: 20240109
  Serious: Yes (Other)
  Sender: FDA-Public Use
  Company Number: None

PATIENT
  Age: 50 Year
  Sex: Female
  Weight: 61 kg

DRUGS (2)
  1. ESTRADIOL [Suspect]
     Active Substance: ESTRADIOL
     Indication: Product used for unknown indication
     Dosage: 1 DF, QD (750 MICROGRAM PER ACTUATION 1-4 MEASURES)
     Route: 065
     Dates: start: 20221031
  2. PROGESTERONE [Concomitant]
     Active Substance: PROGESTERONE
     Indication: Product used for unknown indication
     Dosage: FOR DAY 14 TO DAY 28 OF EACH CYCLE
     Route: 065
     Dates: start: 20221031, end: 20231016

REACTIONS (2)
  - Poor quality sleep [Unknown]
  - Palpitations [Recovering/Resolving]
